FAERS Safety Report 4518414-8 (Version None)
Quarter: 2004Q4

REPORT INFORMATION
  Report Type: 
  Country: None (occurrence: None)
  Receive Date: 20041102
  Receipt Date: 20040326
  Transmission Date: 20050328
  Serious: Yes (Other)
  Sender: FDA-Public Use
  Company Number: PHEH2004US02714

PATIENT
  Age: 84 Year
  Sex: Female

DRUGS (1)
  1. LESCOL XL [Suspect]
     Indication: HYPERCHOLESTEROLAEMIA
     Dosage: 80 MG QD
     Dates: start: 20031028, end: 20031208

REACTIONS (8)
  - ALANINE AMINOTRANSFERASE INCREASED [None]
  - ASPARTATE AMINOTRANSFERASE INCREASED [None]
  - BLOOD ALKALINE PHOSPHATASE INCREASED [None]
  - BLOOD BILIRUBIN INCREASED [None]
  - CHROMATURIA [None]
  - NAUSEA [None]
  - PYREXIA [None]
  - VOMITING PROJECTILE [None]
